FAERS Safety Report 6933889-2 (Version None)
Quarter: 2010Q3

REPORT INFORMATION
  Report Type: 
  Country: None (occurrence: None)
  Receive Date: 20100820
  Receipt Date: 20100811
  Transmission Date: 20110219
  Serious: Yes (Other)
  Sender: FDA-Public Use
  Company Number: JP-ROCHE-717641

PATIENT
  Sex: Female
  Weight: 54 kg

DRUGS (3)
  1. AVASTIN [Suspect]
     Indication: LUNG ADENOCARCINOMA RECURRENT
     Route: 041
     Dates: start: 20100423, end: 20100607
  2. PACLITAXEL [Suspect]
     Indication: LUNG ADENOCARCINOMA RECURRENT
     Dosage: DOSAGE IS UNCERTAIN
     Route: 041
  3. CARBOPLATIN [Concomitant]
     Dosage: DOSAGE UNCERTAIN
     Route: 041

REACTIONS (4)
  - HYPOAESTHESIA [None]
  - INSOMNIA [None]
  - RETINAL HAEMORRHAGE [None]
  - RETINAL VEIN OCCLUSION [None]
